FAERS Safety Report 8387205-2 (Version None)
Quarter: 2012Q2

REPORT INFORMATION
  Report Type: 
  Country: None (occurrence: None)
  Receive Date: 20120525
  Receipt Date: 20120514
  Transmission Date: 20120825
  Serious: Yes (Hospitalization)
  Sender: FDA-Public Use
  Company Number: JP-UCBSA-057337

PATIENT

DRUGS (2)
  1. KEPPRA [Suspect]
     Indication: CONVULSION
     Route: 048
     Dates: start: 20120401, end: 20120101
  2. TEGRETOL [Suspect]
     Indication: CONVULSION
     Route: 048
     Dates: start: 20120401, end: 20120101

REACTIONS (2)
  - WHITE BLOOD CELL COUNT DECREASED [None]
  - RASH [None]
